FAERS Safety Report 17296914 (Version 1)
Quarter: 2020Q1

REPORT INFORMATION
  Report Type: Spontaneous
  Country: IE (occurrence: IE)
  Receive Date: 20200122
  Receipt Date: 20200122
  Transmission Date: 20200409
  Serious: Yes (Death, Life-Threatening, Hospitalization)
  Sender: FDA-Public Use
  Company Number: IE-SCIEGEN PHARMACEUTICALS INC-2020SCILIT00004

PATIENT
  Age: 72 Year
  Sex: Female

DRUGS (5)
  1. SIMVASTATIN. [Concomitant]
     Active Substance: SIMVASTATIN
  2. METFORMIN HYDROCHLORIDETABLETS [Suspect]
     Active Substance: METFORMIN HYDROCHLORIDE
  3. ASPIRIN. [Concomitant]
     Active Substance: ASPIRIN
  4. RAMIPRIL. [Concomitant]
     Active Substance: RAMIPRIL
  5. AMLODIPINE [Concomitant]
     Active Substance: AMLODIPINE BESYLATE

REACTIONS (4)
  - Death [Fatal]
  - Lactic acidosis [Recovering/Resolving]
  - Contraindicated product administered [Unknown]
  - Drug level increased [Unknown]
